FAERS Safety Report 4393151-1 (Version None)
Quarter: 2004Q3

REPORT INFORMATION
  Report Type: 
  Country: None (occurrence: None)
  Receive Date: 20040702
  Receipt Date: 20040412
  Transmission Date: 20050211
  Serious: Yes (Other)
  Sender: FDA-Public Use
  Company Number: 2004UW07323

PATIENT
  Age: 70 Year
  Sex: Female
  Weight: 83.4619 kg

DRUGS (4)
  1. CRESTOR [Suspect]
     Indication: BLOOD CHOLESTEROL INCREASED
     Dosage: 10 MG PO
     Route: 048
     Dates: start: 20040322
  2. ASPIRIN [Concomitant]
  3. ADVIL [Concomitant]
  4. MULTIVITAMIN [Concomitant]

REACTIONS (4)
  - ANXIETY [None]
  - ASTHENIA [None]
  - MYALGIA [None]
  - POLLAKIURIA [None]
